FAERS Safety Report 9409966 (Version 1)
Quarter: 2013Q3

REPORT INFORMATION
  Report Type: Report from Study
  Country: DE (occurrence: DE)
  Receive Date: 20130719
  Receipt Date: 20130719
  Transmission Date: 20140515
  Serious: Yes (Other)
  Sender: FDA-Public Use
  Company Number: DE-SANOFI-AVENTIS-2013SA071204

PATIENT
  Sex: Female
  Weight: 61 kg

DRUGS (3)
  1. RAMIPRIL [Concomitant]
     Dosage: UNIT CONT:5
  2. MULTAQ [Suspect]
     Indication: ATRIAL FIBRILLATION
     Route: 048
     Dates: end: 20130123
  3. VIT K ANTAGONISTS [Concomitant]
     Dates: start: 20110226

REACTIONS (2)
  - Atrial fibrillation [Unknown]
  - Abdominal discomfort [Unknown]
